FAERS Safety Report 5079248-1 (Version None)
Quarter: 2006Q3

REPORT INFORMATION
  Report Type: 
  Country: None (occurrence: None)
  Receive Date: 20060814
  Receipt Date: 20010330
  Transmission Date: 20061208
  Serious: Yes (Life-Threatening, Hospitalization, Disabling)
  Sender: FDA-Public Use
  Company Number: US-MERCK-01040577

PATIENT
  Age: 52 Year
  Sex: Male
  Weight: 86 kg

DRUGS (11)
  1. ZOCOR [Suspect]
     Indication: HYPERLIPIDAEMIA
     Route: 048
     Dates: start: 19990301, end: 20010323
  2. ZOCOR [Suspect]
     Indication: CORONARY ARTERY DISEASE
     Route: 048
     Dates: start: 19990301, end: 20010323
  3. LOPID [Suspect]
     Indication: CORONARY ARTERY DISEASE
     Route: 065
     Dates: start: 19990301, end: 20010301
  4. COUMADIN [Concomitant]
     Route: 065
  5. VIOXX [Suspect]
     Indication: PROCEDURAL PAIN
     Route: 065
     Dates: end: 20010301
  6. GLUCOPHAGE XR [Concomitant]
     Route: 065
     Dates: end: 20010301
  7. PRILOSEC [Concomitant]
     Route: 065
  8. DARVON [Concomitant]
     Indication: PROCEDURAL PAIN
     Route: 065
  9. PRINIVIL [Suspect]
     Route: 065
     Dates: end: 20010301
  10. AMBIEN [Concomitant]
     Route: 065
     Dates: end: 20010301
  11. CIPRO [Concomitant]
     Route: 065
     Dates: end: 20010301

REACTIONS (9)
  - CORONARY ARTERY DISEASE [None]
  - DRUG INTERACTION [None]
  - INTERNATIONAL NORMALISED RATIO INCREASED [None]
  - INTERVERTEBRAL DISC PROTRUSION [None]
  - LUMBAR SPINAL STENOSIS [None]
  - PLEURAL EFFUSION [None]
  - RENAL CYST [None]
  - RENAL FAILURE ACUTE [None]
  - RHABDOMYOLYSIS [None]
